FAERS Safety Report 4976412-4 (Version None)
Quarter: 2006Q2

REPORT INFORMATION
  Report Type: 
  Country: None (occurrence: None)
  Receive Date: 20060412
  Receipt Date: 20060404
  Transmission Date: 20061013
  Serious: Yes (Other)
  Sender: FDA-Public Use
  Company Number: 163-C5013-06030730

PATIENT
  Age: 74 Year
  Sex: Female
  Weight: 45.9 kg

DRUGS (9)
  1. REVLIMID [Suspect]
     Indication: MULTIPLE MYELOMA
     Dosage: SEE IMAGE
     Route: 048
     Dates: start: 20050225, end: 20050509
  2. DEXAMETHASONE [Suspect]
     Indication: MULTIPLE MYELOMA
     Dosage: SEE IMAGE
     Route: 048
     Dates: start: 20050225, end: 20050506
  3. FOSAMAX [Concomitant]
  4. MIACALCIN [Concomitant]
  5. PROPRANOLOL [Concomitant]
  6. LEVOTHROID [Concomitant]
  7. FERROUS SULFATE TAB [Concomitant]
  8. CYANOCOBALAMIN [Concomitant]
  9. COUMADIN [Concomitant]

REACTIONS (2)
  - MUSCULAR WEAKNESS [None]
  - TREMOR [None]
